FAERS Safety Report 11898578 (Version 3)
Quarter: 2016Q1

REPORT INFORMATION
  Report Type: Spontaneous
  Country: GB (occurrence: GB)
  Receive Date: 20160108
  Receipt Date: 20160216
  Transmission Date: 20160526
  Serious: Yes (Other)
  Sender: FDA-Public Use
  Company Number: GB-JNJFOC-20160104559

PATIENT
  Sex: Female

DRUGS (1)
  1. SIMPONI [Suspect]
     Active Substance: GOLIMUMAB
     Indication: PRODUCT USED FOR UNKNOWN INDICATION
     Route: 058

REACTIONS (8)
  - Oropharyngeal pain [Recovering/Resolving]
  - Faeces discoloured [Unknown]
  - Oral herpes [Unknown]
  - Lower respiratory tract infection [Recovering/Resolving]
  - Intervertebral disc protrusion [Unknown]
  - Cough [Recovering/Resolving]
  - Sneezing [Unknown]
  - Pain [Unknown]

NARRATIVE: CASE EVENT DATE: 2015
